FAERS Safety Report 8066356-6 (Version None)
Quarter: 2012Q1

REPORT INFORMATION
  Report Type: 
  Country: None (occurrence: None)
  Receive Date: 20120124
  Receipt Date: 20120120
  Transmission Date: 20120608
  Serious: Yes (Hospitalization, Other)
  Sender: FDA-Public Use
  Company Number: CA-BAYER-2012-007066

PATIENT
  Age: 68 Year
  Sex: Male

DRUGS (10)
  1. BETASERON [Suspect]
     Dosage: UNK
     Dates: start: 20000101
  2. BISOPROLOL [Concomitant]
  3. ASAPHEN [Concomitant]
  4. LYRICA [Concomitant]
  5. CRESTOR [Concomitant]
  6. HYDROMORPH [Concomitant]
  7. NITROGLYCERIN [Concomitant]
     Dosage: UNK
     Dates: start: 20000101
  8. PERINDOPRIL ERBUMINE [Concomitant]
  9. CLARITHROMYCIN [Concomitant]
  10. PLAVIX [Concomitant]

REACTIONS (3)
  - OROPHARYNGEAL PAIN [None]
  - NECK MASS [None]
  - CORONARY ARTERY OCCLUSION [None]
